FAERS Safety Report 8963875 (Version 1)
Quarter: 2012Q4

REPORT INFORMATION
  Report Type: Report from Study
  Country: ES (occurrence: ES)
  Receive Date: 20121213
  Receipt Date: 20121213
  Transmission Date: 20130627
  Serious: Yes (Other)
  Sender: FDA-Public Use
  Company Number: ES-VERTEX PHARMACEUTICALS INC.-2012-026110

PATIENT

DRUGS (3)
  1. INCIVO [Suspect]
     Indication: HEPATITIS C
     Dosage: Dosage Form: Tablet
     Route: 048
  2. RIBAVIRIN [Concomitant]
     Indication: HEPATITIS C
  3. PEG-INTERFERON [Concomitant]
     Indication: HEPATITIS C

REACTIONS (5)
  - Anaemia [Unknown]
  - Skin reaction [Unknown]
  - Rash [Unknown]
  - Rash [Unknown]
  - Skin toxicity [Unknown]
